FAERS Safety Report 5647258-9 (Version None)
Quarter: 2008Q1

REPORT INFORMATION
  Report Type: 
  Country: None (occurrence: None)
  Receive Date: 20080303
  Receipt Date: 20080229
  Transmission Date: 20080703
  Serious: Yes (Other)
  Sender: FDA-Public Use
  Company Number: PHNU2008DE00696

PATIENT
  Age: 71 Year
  Sex: Female

DRUGS (27)
  1. RASILEZ [Suspect]
     Indication: HYPERTENSION
     Dosage: 1 DF, QD
     Dates: start: 20080105
  2. HYDROCHLOROTHIAZIDE [Concomitant]
  3. DECORTIN [Concomitant]
     Dosage: 45 MG/D
     Dates: end: 20080107
  4. DECORTIN [Concomitant]
     Dosage: 30 MG/D
     Dates: start: 20080108, end: 20080113
  5. DECORTIN [Concomitant]
     Dosage: 20 MG/D
     Dates: start: 20080114, end: 20080101
  6. DECORTIN [Concomitant]
     Dosage: 10 MG/D
     Dates: start: 20080101
  7. FERRO ^SANOL^ [Concomitant]
     Dosage: 1 DF, QD
  8. BRONCHORETARD [Concomitant]
     Dosage: 1 DF, BID
  9. LORZAAR [Concomitant]
     Dosage: 1 DF, TID
  10. LORZAAR [Concomitant]
     Dosage: 1 DF, BID
  11. LORZAAR [Concomitant]
     Dosage: 1 DF, QD
  12. MOXONIDINE [Concomitant]
     Dosage: 1 DF, QD
     Dates: end: 20080201
  13. PANTOZOL [Concomitant]
     Dosage: 1 DF, QD
  14. TREVILOR [Concomitant]
     Dosage: 1 DF, QD
  15. ZOPICLON [Concomitant]
     Dosage: 1 DF, QD
  16. KALINOR-RETARD P [Concomitant]
     Dosage: 1 DF, BID
  17. LASIX [Concomitant]
     Dosage: 160 MG/D
     Dates: end: 20080104
  18. LASIX [Concomitant]
     Dosage: 240 MG/D
     Dates: start: 20080105, end: 20080115
  19. NOVODIGAL [Concomitant]
     Dosage: 1 DF, QD
  20. SPIRIVA [Concomitant]
     Dosage: 1 DF, QD
  21. VIANI [Concomitant]
     Dosage: 1 DF, BID
  22. BELOC ZOK [Concomitant]
     Dosage: 1 DF, TID
     Dates: start: 20080101
  23. BELOC ZOK [Concomitant]
     Dosage: 1 DF, QD
  24. BELOC ZOK [Concomitant]
     Dosage: 1 DF, TID
  25. NORVASC [Concomitant]
     Dosage: 1 DF, QD
     Dates: start: 20080101
  26. PERENTEROL                              /GFR/ [Concomitant]
     Dosage: 1 DF, TID
  27. LASIX [Concomitant]
     Dosage: 500 MG/D
     Dates: start: 20080116

REACTIONS (5)
  - HEART RATE INCREASED [None]
  - HYPOTENSION [None]
  - NEOPLASM [None]
  - NOREPINEPHRINE INCREASED [None]
  - RENIN INCREASED [None]
